FAERS Safety Report 24006245 (Version 1)
Quarter: 2024Q2

REPORT INFORMATION
  Report Type: Spontaneous
  Country: GB (occurrence: GB)
  Receive Date: 20240624
  Receipt Date: 20240624
  Transmission Date: 20240715
  Serious: Yes (Hospitalization, Other)
  Sender: FDA-Public Use
  Company Number: GB-JNJFOC-20240641593

PATIENT
  Age: 70 Year
  Sex: Female

DRUGS (2)
  1. ACETAMINOPHEN [Suspect]
     Active Substance: ACETAMINOPHEN
     Indication: Adverse drug reaction
     Dosage: 1.5ML
     Route: 065
  2. HEPARIN SODIUM\SODIUM CITRATE\TAUROLIDINE [Suspect]
     Active Substance: HEPARIN SODIUM\SODIUM CITRATE\TAUROLIDINE
     Indication: Product used for unknown indication
     Route: 065

REACTIONS (3)
  - Product administered to patient of inappropriate age [Unknown]
  - Chest discomfort [Unknown]
  - Skin infection [Unknown]

NARRATIVE: CASE EVENT DATE: 20240612
